FAERS Safety Report 5968597-8 (Version None)
Quarter: 2008Q4

REPORT INFORMATION
  Report Type: 
  Country: None (occurrence: None)
  Receive Date: 20081126
  Receipt Date: 20081112
  Transmission Date: 20090506
  Serious: Yes (Hospitalization, Disabling)
  Sender: FDA-Public Use
  Company Number: FR-MERCK-0809FRA00093

PATIENT
  Age: 42 Year
  Sex: Female

DRUGS (16)
  1. ISENTRESS [Suspect]
     Indication: HIV INFECTION
     Route: 048
     Dates: start: 20080822, end: 20080917
  2. ISENTRESS [Suspect]
     Route: 048
     Dates: start: 20080922
  3. MARAVIROC [Suspect]
     Indication: HIV INFECTION
     Route: 048
     Dates: start: 20080822, end: 20080917
  4. MARAVIROC [Suspect]
     Route: 048
     Dates: start: 20080922
  5. DARUNAVIR [Suspect]
     Indication: HIV INFECTION
     Route: 048
     Dates: start: 20080822, end: 20080917
  6. RITONAVIR [Suspect]
     Indication: HIV INFECTION
     Route: 048
     Dates: start: 20080822, end: 20080917
  7. RITONAVIR [Suspect]
     Route: 048
     Dates: start: 20080922
  8. LAMIVUDINE [Suspect]
     Indication: HIV INFECTION
     Route: 048
     Dates: start: 20080822, end: 20080917
  9. VALPROATE SODIUM [Suspect]
     Route: 048
  10. OLANZAPINE [Concomitant]
     Route: 048
  11. CLONAZEPAM [Concomitant]
     Route: 048
  12. ATOVAQUONE [Concomitant]
     Route: 048
     Dates: start: 20080716, end: 20080919
  13. TRIMEPRAZINE TARTRATE [Concomitant]
     Route: 048
     Dates: start: 20080723, end: 20080919
  14. CYAMEMAZINE [Concomitant]
     Route: 048
     Dates: start: 20080812, end: 20080919
  15. GLICLAZIDE [Concomitant]
     Route: 048
     Dates: start: 20071126, end: 20080919
  16. PIOGLITAZONE HYDROCHLORIDE [Concomitant]
     Route: 048
     Dates: start: 20071126, end: 20080919

REACTIONS (2)
  - ERYSIPELAS [None]
  - NEUTROPENIA [None]
